FAERS Safety Report 20381884 (Version 1)
Quarter: 2022Q1

REPORT INFORMATION
  Report Type: Spontaneous
  Country: GB (occurrence: GB)
  Receive Date: 20220127
  Receipt Date: 20220127
  Transmission Date: 20220423
  Serious: Yes (Death, Congenital Anomaly)
  Sender: FDA-Public Use
  Company Number: None

PATIENT

DRUGS (3)
  1. FLUOXETINE [Suspect]
     Active Substance: FLUOXETINE HYDROCHLORIDE
     Route: 064
  2. ARIPIPRAZOLE [Suspect]
     Active Substance: ARIPIPRAZOLE
     Route: 064
  3. PREGABALIN [Suspect]
     Active Substance: PREGABALIN
     Route: 064

REACTIONS (6)
  - Foetal exposure during pregnancy [Unknown]
  - Extrasystoles [Unknown]
  - Foetal hypokinesia [Unknown]
  - Pulmonary hypoplasia [Fatal]
  - Pulmonary hypertension [Fatal]
  - Premature baby [Fatal]

NARRATIVE: CASE EVENT DATE: 20210626
